FAERS Safety Report 8351142-X (Version None)
Quarter: 2012Q2

REPORT INFORMATION
  Report Type: 
  Country: None (occurrence: None)
  Receive Date: 20120510
  Receipt Date: 20120503
  Transmission Date: 20120825
  Serious: Yes (Other)
  Sender: FDA-Public Use
  Company Number: US-JNJFOC-20120506388

PATIENT
  Age: 14 Year
  Sex: Female
  Weight: 57.61 kg

DRUGS (4)
  1. ZYRTEC [Suspect]
     Indication: MULTIPLE ALLERGIES
     Dosage: ONCE DAILY FOR ABOUT 3 YEARS
     Route: 048
     Dates: end: 20120502
  2. CETIRIZINE HYDROCHLORIDE [Suspect]
     Indication: PRODUCT USED FOR UNKNOWN INDICATION
     Dosage: DAILY FOR 3 YEARS
     Route: 065
  3. UNKNOWN ALLERGY SHOTS [Concomitant]
     Indication: MULTIPLE ALLERGIES
     Dosage: ONCE A WEEK SINE 5 WEEKS
     Route: 065
  4. ZYRTEC [Suspect]
     Indication: RHINORRHOEA
     Dosage: ONCE DAILY FOR ABOUT 3 YEARS
     Route: 048
     Dates: end: 20120502

REACTIONS (4)
  - DRUG INEFFECTIVE [None]
  - FEELING ABNORMAL [None]
  - RECTAL HAEMORRHAGE [None]
  - ABDOMINAL PAIN UPPER [None]
